FAERS Safety Report 9311930 (Version 4)
Quarter: 2014Q1

REPORT INFORMATION
  Report Type: Report from Study
  Country: IL (occurrence: IL)
  Receive Date: 20130528
  Receipt Date: 20140116
  Transmission Date: 20141002
  Serious: Yes (Hospitalization, Other)
  Sender: FDA-Public Use
  Company Number: PHHY2013IL053043

PATIENT
  Age: 68 Year
  Sex: Male

DRUGS (7)
  1. ACLASTA [Suspect]
     Indication: OSTEOPOROSIS
     Dosage: 5 MG/ 100 ML, ONCE A YEAR
     Route: 042
     Dates: start: 20110411
  2. ACLASTA [Suspect]
     Dosage: 5 MG/ 100 ML, ONCE A YEAR
     Route: 042
     Dates: start: 20120410
  3. SANDOSTATIN LAR [Suspect]
     Indication: CARCINOID SYNDROME
     Dosage: 30 MG, QW4
     Route: 030
     Dates: start: 20130306
  4. SANDOSTATIN LAR [Suspect]
     Dosage: 30 MG, QW4
     Route: 030
     Dates: start: 20130717
  5. SANDOSTATIN LAR [Suspect]
     Dosage: 30 MG, QW4
     Route: 030
     Dates: start: 20130814
  6. SANDOSTATIN LAR [Suspect]
     Dosage: 30 MG, QW4
     Route: 030
     Dates: start: 20131212
  7. SANDOSTATIN LAR [Suspect]
     Dosage: UNK UKN, UNK
     Dates: start: 20140109

REACTIONS (10)
  - Malignant neoplasm progression [Recovering/Resolving]
  - Metastases to liver [Unknown]
  - Umbilical hernia [Unknown]
  - Blood gastrin increased [Unknown]
  - Blood test abnormal [Unknown]
  - Platelet count decreased [Recovered/Resolved]
  - Red blood cell count decreased [Unknown]
  - Weight decreased [Unknown]
  - Alopecia [Unknown]
  - Haemoglobin decreased [Unknown]
